FAERS Safety Report 23357601 (Version 1)
Quarter: 2024Q1

REPORT INFORMATION
  Report Type: Spontaneous
  Country: AT (occurrence: AT)
  Receive Date: 20240102
  Receipt Date: 20240102
  Transmission Date: 20240410
  Serious: Yes (Other)
  Sender: FDA-Public Use
  Company Number: AT-ABBVIE-5555367

PATIENT
  Sex: Male

DRUGS (3)
  1. OBINUTUZUMAB [Suspect]
     Active Substance: OBINUTUZUMAB
     Indication: Chronic lymphocytic leukaemia
     Route: 065
  2. VENETOCLAX [Suspect]
     Active Substance: VENETOCLAX
     Indication: Chronic lymphocytic leukaemia
     Dosage: RAMP-UP PHASE?START DATE: 2023
     Route: 065
  3. VENETOCLAX [Suspect]
     Active Substance: VENETOCLAX
     Dosage: LAST ADMIN DATE: 2023
     Route: 065
     Dates: start: 202308

REACTIONS (4)
  - Syncope [Unknown]
  - Tumour lysis syndrome [Unknown]
  - Ventricular fibrillation [Unknown]
  - Diarrhoea [Unknown]

NARRATIVE: CASE EVENT DATE: 20231201
